FAERS Safety Report 23326569 (Version 2)
Quarter: 2024Q1

REPORT INFORMATION
  Report Type: Spontaneous
  Country: CN (occurrence: CN)
  Receive Date: 20231221
  Receipt Date: 20240104
  Transmission Date: 20240410
  Serious: Yes (Hospitalization, Other)
  Sender: FDA-Public Use
  Company Number: CN-JUBILANT CADISTA PHARMACEUTICALS-2023CN001660

PATIENT
  Age: 56 Year
  Sex: Female

DRUGS (1)
  1. LEVOFLOXACIN [Suspect]
     Active Substance: LEVOFLOXACIN
     Indication: Pneumonia
     Dosage: UNK,UNK
     Route: 042
     Dates: start: 20220902

REACTIONS (10)
  - Cognitive disorder [Recovered/Resolved]
  - Seizure [Recovered/Resolved]
  - Discomfort [Recovered/Resolved]
  - Somnolence [Recovered/Resolved]
  - Muscular weakness [Recovered/Resolved]
  - Dysarthria [Recovered/Resolved]
  - Tremor [Recovered/Resolved]
  - Loss of consciousness [Recovered/Resolved]
  - Eye movement disorder [Recovered/Resolved]
  - Gait inability [Recovered/Resolved]

NARRATIVE: CASE EVENT DATE: 20220901
